FAERS Safety Report 8877677 (Version 2)
Quarter: 2013Q1

REPORT INFORMATION
  Report Type: Report from Study
  Country: FR (occurrence: FR)
  Receive Date: 20121024
  Receipt Date: 20130212
  Transmission Date: 20140127
  Serious: Yes (Hospitalization)
  Sender: FDA-Public Use
  Company Number: FR-ROCHE-1139798

PATIENT
  Age: 59 Year
  Sex: Female
  Weight: 70 kg

DRUGS (4)
  1. BEVACIZUMAB [Suspect]
     Indication: OVARIAN CANCER
     Dosage: LAST DOSE PROIR TO SAE ON 29/AUG/2012
     Route: 042
     Dates: start: 20110525, end: 20120829
  2. CARBOPLATIN [Suspect]
     Indication: OVARIAN CANCER
     Dosage: 6 AUC. LAST DOSE PROIR TO SAE ON 07/SEP/2011
     Route: 042
     Dates: start: 20110525
  3. PACLITAXEL [Suspect]
     Indication: OVARIAN CANCER
     Dosage: LAST DOSE PROIR TO SAE ON 07/SEP/2011
     Route: 042
     Dates: start: 20110525
  4. SMECTA [Concomitant]
     Route: 065
     Dates: start: 201203

REACTIONS (1)
  - Rheumatic disorder [Not Recovered/Not Resolved]
